FAERS Safety Report 13782841 (Version 1)
Quarter: 2017Q3

REPORT INFORMATION
  Report Type: Report from Study
  Country: US (occurrence: US)
  Receive Date: 20170724
  Receipt Date: 20170724
  Transmission Date: 20171127
  Serious: Yes (Other)
  Sender: FDA-Public Use
  Company Number: US-EMD SERONO-8170599

PATIENT
  Sex: Female

DRUGS (1)
  1. REBIF [Suspect]
     Active Substance: INTERFERON BETA-1A
     Indication: PRODUCT USED FOR UNKNOWN INDICATION
     Route: 058
     Dates: start: 20130104

REACTIONS (7)
  - Liver function test increased [Unknown]
  - Muscle spasticity [Unknown]
  - Injection site erythema [Recovering/Resolving]
  - Feeling cold [Unknown]
  - Influenza like illness [Not Recovered/Not Resolved]
  - Tooth abscess [Unknown]
  - Injection site bruising [Recovering/Resolving]

NARRATIVE: CASE EVENT DATE: 2017
